FAERS Safety Report 19140035 (Version 17)
Quarter: 2024Q4

REPORT INFORMATION
  Report Type: Report from Study
  Country: US (occurrence: US)
  Receive Date: 20210415
  Receipt Date: 20241003
  Transmission Date: 20250115
  Serious: Yes (Other)
  Sender: TAKEDA
  Company Number: US-SHIRE-US202014843

PATIENT
  Age: 63 Year
  Sex: Female

DRUGS (4)
  1. HUMAN IMMUNOGLOBULIN G [Suspect]
     Active Substance: HUMAN IMMUNOGLOBULIN G
     Indication: Immunodeficiency common variable
     Dosage: 25 GRAM, MONTHLY
     Route: 042
  2. HUMAN IMMUNOGLOBULIN G [Suspect]
     Active Substance: HUMAN IMMUNOGLOBULIN G
     Indication: Primary immunodeficiency syndrome
     Dosage: 30 GRAM, Q4WEEKS
     Route: 042
  3. HUMAN IMMUNOGLOBULIN G [Suspect]
     Active Substance: HUMAN IMMUNOGLOBULIN G
     Dosage: UNK
     Route: 042
  4. SYNTHROID [Concomitant]
     Active Substance: LEVOTHYROXINE SODIUM
     Indication: Product used for unknown indication
     Dosage: UNK
     Route: 065

REACTIONS (40)
  - Lyme disease [Unknown]
  - Rocky mountain spotted fever [Unknown]
  - Pneumonia [Recovering/Resolving]
  - Renal impairment [Unknown]
  - Blood immunoglobulin M decreased [Unknown]
  - Blood immunoglobulin A decreased [Unknown]
  - Musculoskeletal discomfort [Recovering/Resolving]
  - Intervertebral disc protrusion [Unknown]
  - Illness [Recovering/Resolving]
  - Back disorder [Recovering/Resolving]
  - Insurance issue [Unknown]
  - Stress [Unknown]
  - Urine abnormality [Unknown]
  - Arthropod bite [Unknown]
  - Gait inability [Unknown]
  - Scab [Unknown]
  - Neuralgia [Unknown]
  - Dysphonia [Unknown]
  - Hypersomnia [Unknown]
  - COVID-19 [Recovering/Resolving]
  - Weight decreased [Unknown]
  - Muscle strain [Unknown]
  - Rash macular [Unknown]
  - Rotator cuff syndrome [Unknown]
  - Tendon disorder [Unknown]
  - Viral pharyngitis [Recovering/Resolving]
  - Inappropriate schedule of product administration [Unknown]
  - Pain [Unknown]
  - Asthenia [Unknown]
  - Rash papular [Unknown]
  - Lymphadenopathy [Unknown]
  - Anxiety [Recovering/Resolving]
  - Back pain [Unknown]
  - Arthralgia [Unknown]
  - Blood pressure increased [Unknown]
  - Pain in extremity [Unknown]
  - Diarrhoea [Unknown]
  - Myalgia [Unknown]
  - Nausea [Unknown]
  - Fatigue [Not Recovered/Not Resolved]

NARRATIVE: CASE EVENT DATE: 20220418
